FAERS Safety Report 5638981-0 (Version None)
Quarter: 2008Q1

REPORT INFORMATION
  Report Type: 
  Country: None (occurrence: None)
  Receive Date: 20080226
  Receipt Date: 20080215
  Transmission Date: 20080703
  Serious: Yes (Other)
  Sender: FDA-Public Use
  Company Number: PHEH2008US01898

PATIENT
  Sex: Male

DRUGS (1)
  1. EXJADE [Suspect]
     Dates: start: 20060101

REACTIONS (2)
  - APLASTIC ANAEMIA [None]
  - CONDITION AGGRAVATED [None]
